FAERS Safety Report 8960506 (Version 1)
Quarter: 2012Q4

REPORT INFORMATION
  Report Type: Spontaneous
  Country: US (occurrence: None)
  Receive Date: 20121211
  Receipt Date: 20121211
  Transmission Date: 20130627
  Serious: Yes (Other)
  Sender: FDA-Public Use
  Company Number: None

PATIENT
  Age: 56 Year
  Sex: Female
  Weight: 90.72 kg

DRUGS (1)
  1. CHANTIX [Suspect]
     Indication: CESSATION OF SMOKING
     Dosage: 1 pill  Daily  po
     Route: 048
     Dates: start: 20121201, end: 20121207

REACTIONS (1)
  - Depression [None]
